FAERS Safety Report 14243309 (Version 2)
Quarter: 2017Q4

REPORT INFORMATION
  Report Type: Spontaneous
  Country: JP (occurrence: JP)
  Receive Date: 20171201
  Receipt Date: 20171206
  Transmission Date: 20180321
  Serious: Yes (Hospitalization)
  Sender: FDA-Public Use
  Company Number: JP-NAPPMUNDI-GBR-2017-0051022

PATIENT
  Age: 56 Year
  Sex: Female

DRUGS (2)
  1. NORSPAN [Suspect]
     Active Substance: BUPRENORPHINE
     Indication: ABDOMINAL PAIN UPPER
  2. NORSPAN [Suspect]
     Active Substance: BUPRENORPHINE
     Indication: BACK PAIN
     Dosage: 5 MCG, Q1H
     Route: 062
     Dates: end: 20170612

REACTIONS (2)
  - Pain [Not Recovered/Not Resolved]
  - Pancreatic carcinoma metastatic [Not Recovered/Not Resolved]
